FAERS Safety Report 15781866 (Version 12)
Quarter: 2020Q4

REPORT INFORMATION
  Report Type: Report from Study
  Country: CN (occurrence: CN)
  Receive Date: 20190102
  Receipt Date: 20201029
  Transmission Date: 20210113
  Serious: Yes (Hospitalization)
  Sender: FDA-Public Use
  Company Number: CN-ROCHE-2238197

PATIENT
  Age: 46 Year
  Sex: Female
  Weight: 54 kg

DRUGS (40)
  1. BEVACIZUMAB. [Suspect]
     Active Substance: BEVACIZUMAB
     Indication: MALIGNANT PERITONEAL NEOPLASM
     Dosage: MOST RECENT DOSE (840 MG) ON 08/MAR/2019
     Route: 042
     Dates: start: 20181231
  2. AZASETRON HYDROCHLORIDE [Concomitant]
     Active Substance: AZASETRON HYDROCHLORIDE
     Dates: start: 20190215, end: 20190215
  3. SODIUM CHLORIDE. [Concomitant]
     Active Substance: SODIUM CHLORIDE
     Dates: start: 20181206, end: 20181206
  4. FERROUS SUCCINATE [Concomitant]
     Active Substance: FERROUS SUCCINATE
     Dates: start: 20190126, end: 20190214
  5. POTASSIUM CHLORIDE. [Concomitant]
     Active Substance: POTASSIUM CHLORIDE
     Dates: start: 20181207, end: 20181210
  6. POTASSIUM CHLORIDE. [Concomitant]
     Active Substance: POTASSIUM CHLORIDE
     Dates: start: 20190308, end: 20190308
  7. ESTAZOLAM. [Concomitant]
     Active Substance: ESTAZOLAM
     Dates: start: 20190410, end: 20190411
  8. ESTAZOLAM. [Concomitant]
     Active Substance: ESTAZOLAM
     Dates: start: 20190519, end: 20190519
  9. PACLITAXEL. [Suspect]
     Active Substance: PACLITAXEL
     Indication: MALIGNANT PERITONEAL NEOPLASM
     Dosage: DATE OF MOST RECENT DOSE (255 MG) PRIOR TO EVENT: 06/DEC/2018?DATE OF MOST RECENT DOSE (270 MG) PRIO
     Route: 042
     Dates: start: 20181206
  10. LANSOPRAZOLE. [Concomitant]
     Active Substance: LANSOPRAZOLE
     Dates: start: 20190215, end: 20190215
  11. LANSOPRAZOLE. [Concomitant]
     Active Substance: LANSOPRAZOLE
     Dates: start: 20190308, end: 20190308
  12. AMIFOSTINE. [Concomitant]
     Active Substance: AMIFOSTINE
     Dates: start: 20190308, end: 20190308
  13. CALCIUM GLUCONATE. [Concomitant]
     Active Substance: CALCIUM GLUCONATE
     Indication: MINERAL SUPPLEMENTATION
     Dates: start: 20181207, end: 20181207
  14. POVIDONE-IODINE. [Concomitant]
     Active Substance: POVIDONE-IODINE
     Dates: start: 20181206, end: 20181206
  15. FERROUS SUCCINATE [Concomitant]
     Active Substance: FERROUS SUCCINATE
     Indication: ANAEMIA
     Dates: start: 20181207, end: 20190123
  16. ESTAZOLAM. [Concomitant]
     Active Substance: ESTAZOLAM
     Dates: start: 20190429, end: 20190429
  17. ATEZOLIZUMAB. [Suspect]
     Active Substance: ATEZOLIZUMAB
     Indication: MALIGNANT PERITONEAL NEOPLASM
     Dosage: DATE OF MOST RECENT DOSE PRIOR TO EVENT: 06/DEC/2018?MOST RECENT DOSE ON 08/MAR/2019
     Route: 042
     Dates: start: 20181206
  18. INVERT SUGAR [Concomitant]
     Active Substance: INVERT SUGAR
     Dates: start: 20181206, end: 20181206
  19. HIRUDOID [Concomitant]
     Active Substance: GLYCOSAMINOGLYCANS
     Indication: OEDEMA
     Dates: start: 20181206, end: 20181208
  20. ESTAZOLAM. [Concomitant]
     Active Substance: ESTAZOLAM
     Dates: start: 20190413, end: 20190413
  21. ESTAZOLAM. [Concomitant]
     Active Substance: ESTAZOLAM
     Dates: start: 20190423, end: 20190423
  22. LIDOCAINE HYDROCHLORIDE. [Concomitant]
     Active Substance: LIDOCAINE HYDROCHLORIDE
     Dates: start: 20181206, end: 20181206
  23. MAGNESIUM SULFATE. [Concomitant]
     Active Substance: MAGNESIUM SULFATE
     Indication: OEDEMA
     Dates: start: 20181205, end: 20181208
  24. POTASSIUM CHLORIDE. [Concomitant]
     Active Substance: POTASSIUM CHLORIDE
     Dates: start: 20190215, end: 20190215
  25. ESTAZOLAM. [Concomitant]
     Active Substance: ESTAZOLAM
     Route: 042
     Dates: start: 20190522, end: 20190522
  26. LANSOPRAZOLE. [Concomitant]
     Active Substance: LANSOPRAZOLE
     Dates: start: 20181206, end: 20181206
  27. AZASETRON HYDROCHLORIDE [Concomitant]
     Active Substance: AZASETRON HYDROCHLORIDE
     Dates: start: 20181206, end: 20181206
  28. SODIUM CHLORIDE. [Concomitant]
     Active Substance: SODIUM CHLORIDE
     Dates: start: 20190308, end: 20190308
  29. AMIFOSTINE. [Concomitant]
     Active Substance: AMIFOSTINE
     Dates: start: 20181206, end: 20181206
  30. GLUTATHIONE [Concomitant]
     Active Substance: GLUTATHIONE
     Dates: start: 20181206, end: 20181206
  31. GLUTATHIONE [Concomitant]
     Active Substance: GLUTATHIONE
     Dates: start: 20190215, end: 20190215
  32. CARBOPLATIN. [Suspect]
     Active Substance: CARBOPLATIN
     Indication: MALIGNANT PERITONEAL NEOPLASM
     Dosage: AT A DOSE TO ACHIEVE A TARGET AREA UNDER THE CURVE (AUC) OF 6 MILLIGRAMS PER MILLILITER*MINUTE (MG/M
     Route: 042
     Dates: start: 20181206
  33. AZASETRON HYDROCHLORIDE [Concomitant]
     Active Substance: AZASETRON HYDROCHLORIDE
     Dates: start: 20190308, end: 20190308
  34. SODIUM CHLORIDE. [Concomitant]
     Active Substance: SODIUM CHLORIDE
     Dates: start: 20190215, end: 20190215
  35. AMIFOSTINE. [Concomitant]
     Active Substance: AMIFOSTINE
     Dates: start: 20190215, end: 20190215
  36. GLUTATHIONE [Concomitant]
     Active Substance: GLUTATHIONE
     Dates: start: 20181207, end: 20181210
  37. GLUTATHIONE [Concomitant]
     Active Substance: GLUTATHIONE
     Dates: start: 20190308, end: 20190308
  38. ZOLPIDEM [Concomitant]
     Active Substance: ZOLPIDEM TARTRATE
     Dates: start: 20181228, end: 20190102
  39. ESTAZOLAM. [Concomitant]
     Active Substance: ESTAZOLAM
     Dates: start: 20190507, end: 20190507
  40. ESTAZOLAM. [Concomitant]
     Active Substance: ESTAZOLAM
     Dates: start: 20190512, end: 20190512

REACTIONS (2)
  - Thrombocytopenia [Recovered/Resolved]
  - Thrombocytopenia [Recovered/Resolved]

NARRATIVE: CASE EVENT DATE: 20181224
